FAERS Safety Report 7356749 (Version 3)
Quarter: 2017Q3

REPORT INFORMATION
  Report Type: Spontaneous
  Country: US (occurrence: US)
  Receive Date: 20100416
  Receipt Date: 20170824
  Transmission Date: 20171128
  Serious: Yes (Other)
  Sender: FDA-Public Use
  Company Number: US-JNJFOC-20091203307

PATIENT
  Sex: Female

DRUGS (1)
  1. LEVAQUIN [Suspect]
     Active Substance: LEVOFLOXACIN
     Indication: SURGERY
     Route: 048
     Dates: start: 200707, end: 2007

REACTIONS (8)
  - Hypermobility syndrome [Not Recovered/Not Resolved]
  - Stress fracture [Not Recovered/Not Resolved]
  - Arthritis [Recovering/Resolving]
  - Metatarsalgia [Not Recovered/Not Resolved]
  - Depression [Unknown]
  - Tendonitis [Unknown]
  - Tendonitis [Unknown]
  - Tenosynovitis [Not Recovered/Not Resolved]

NARRATIVE: CASE EVENT DATE: 2007
